FAERS Safety Report 9679504 (Version 1)
Quarter: 2013Q4

REPORT INFORMATION
  Report Type: Spontaneous
  Country: US (occurrence: US)
  Receive Date: 20131109
  Receipt Date: 20131109
  Transmission Date: 20140711
  Serious: No
  Sender: FDA-Public Use
  Company Number: US-SANOFI-AVENTIS-2013SA062772

PATIENT
  Age: 65 Year
  Sex: Female

DRUGS (4)
  1. ALLEGRA-D [Suspect]
     Indication: HYPERSENSITIVITY
     Route: 048
  2. ALLEGRA-D [Suspect]
     Indication: UPPER-AIRWAY COUGH SYNDROME
     Route: 048
  3. MAGNESIUM [Suspect]
  4. CALCIUM CITRATE [Suspect]

REACTIONS (8)
  - Constipation [Not Recovered/Not Resolved]
  - Gastrointestinal disorder [Not Recovered/Not Resolved]
  - Micturition disorder [Not Recovered/Not Resolved]
  - Urine analysis abnormal [Not Recovered/Not Resolved]
  - Chromaturia [Not Recovered/Not Resolved]
  - Pain [Recovering/Resolving]
  - Bladder disorder [Not Recovered/Not Resolved]
  - Urinary incontinence [Recovering/Resolving]
